FAERS Safety Report 24729440 (Version 1)
Quarter: 2024Q4

REPORT INFORMATION
  Report Type: Report from Study
  Country: BR (occurrence: BR)
  Receive Date: 20241213
  Receipt Date: 20241213
  Transmission Date: 20250114
  Serious: Yes (Hospitalization)
  Sender: AMGEN
  Company Number: BR-AMGEN-BRASL2024139790

PATIENT
  Age: 39 Year
  Sex: Female

DRUGS (4)
  1. VECTIBIX [Suspect]
     Active Substance: PANITUMUMAB
     Indication: Colorectal cancer
     Dosage: UNK UNK, Q2WK ( EVERY 14 DAYS), INFUSION
     Route: 042
     Dates: start: 20240705
  2. MORPHINE HYDROCHLORIDE [Concomitant]
     Active Substance: MORPHINE HYDROCHLORIDE
     Dosage: 30 MILLIGRAM
  3. PREGABALIN [Concomitant]
     Active Substance: PREGABALIN
  4. ACETAMINOPHEN [Concomitant]
     Active Substance: ACETAMINOPHEN

REACTIONS (13)
  - Inflammation [Recovering/Resolving]
  - Pain [Recovering/Resolving]
  - Decreased immune responsiveness [Recovering/Resolving]
  - Haemorrhage [Recovering/Resolving]
  - Platelet count decreased [Recovering/Resolving]
  - Skin burning sensation [Recovering/Resolving]
  - Gastrointestinal disorder [Recovering/Resolving]
  - Sensitive skin [Recovering/Resolving]
  - Anaemia [Recovering/Resolving]
  - Acne [Recovering/Resolving]
  - Pruritus [Recovering/Resolving]
  - Asthenia [Recovering/Resolving]
  - Abdominal discomfort [Recovering/Resolving]

NARRATIVE: CASE EVENT DATE: 20240101
